FAERS Safety Report 9693368 (Version 1)
Quarter: 2013Q4

REPORT INFORMATION
  Report Type: Spontaneous
  Country: GB (occurrence: GB)
  Receive Date: 20131118
  Receipt Date: 20131118
  Transmission Date: 20140711
  Serious: Yes (Life-Threatening, Other)
  Sender: FDA-Public Use
  Company Number: GB-AMGEN-GBRSP2013081056

PATIENT
  Age: 50 Year
  Sex: Male

DRUGS (9)
  1. ENBREL [Suspect]
     Indication: PSORIASIS
     Dosage: 50 MG, WEEKLY
     Route: 058
     Dates: start: 20100110
  2. DICLOFENAC [Concomitant]
     Dosage: 50 MG, 3X/DAY
  3. GABAPENTIN [Concomitant]
     Dosage: 100 MG, 3X/DAY
  4. METFORMIN [Concomitant]
     Dosage: 500 MG, 3X/DAY
  5. PARACETAMOL [Concomitant]
     Dosage: 1 G, 4X/DAY
  6. RAMIPRIL [Concomitant]
     Dosage: 5 MG, 1X/DAY
  7. SERETIDE [Concomitant]
     Dosage: 1 DF, 2X/DAY
  8. SIMVASTATIN [Concomitant]
     Dosage: 40 MG, 1X/DAY
  9. VARDENAFIL [Concomitant]
     Dosage: 20 MG, UNK

REACTIONS (1)
  - Oesophageal carcinoma [Not Recovered/Not Resolved]
